FAERS Safety Report 14411156 (Version 1)
Quarter: 2018Q1

REPORT INFORMATION
  Report Type: Spontaneous
  Country: US (occurrence: US)
  Receive Date: 20180119
  Receipt Date: 20180119
  Transmission Date: 20180509
  Serious: No
  Sender: FDA-Public Use
  Company Number: US-LEXICON PHARMACEUTICALS, INC-17-1606-01351

PATIENT
  Age: 62 Year
  Sex: Male

DRUGS (5)
  1. MULTIVITAMIN [Concomitant]
     Active Substance: VITAMINS
  2. SOMATULINE [Concomitant]
     Active Substance: LANREOTIDE ACETATE
     Dates: start: 201708
  3. SOMATULINE [Concomitant]
     Active Substance: LANREOTIDE ACETATE
     Dates: start: 201612, end: 201704
  4. VITAMIN C [Concomitant]
     Active Substance: ASCORBIC ACID
  5. TELOTRISTAT ETHYL [Suspect]
     Active Substance: TELOTRISTAT ETHYL
     Indication: CARCINOID SYNDROME
     Route: 048
     Dates: start: 20171031

REACTIONS (1)
  - Diarrhoea [Recovering/Resolving]

NARRATIVE: CASE EVENT DATE: 201710
